FAERS Safety Report 6030082-5 (Version None)
Quarter: 2009Q1

REPORT INFORMATION
  Report Type: 
  Country: None (occurrence: None)
  Receive Date: 20090106
  Receipt Date: 20090106
  Transmission Date: 20090719
  Serious: Yes (Life-Threatening)
  Sender: FDA-Public Use
  Company Number: None

PATIENT
  Age: 59 Year
  Sex: Female
  Weight: 90.7194 kg

DRUGS (1)
  1. PROVENTIL-HFA [Suspect]
     Indication: ASTHMA
     Dosage: 2 PUFFS EVERY 4 HOURS EVERY 4 HOURS INHAL

REACTIONS (5)
  - DRUG EFFECT DECREASED [None]
  - INCREASED UPPER AIRWAY SECRETION [None]
  - LUNG INFECTION [None]
  - PNEUMONIA [None]
  - PRODUCT QUALITY ISSUE [None]
